FAERS Safety Report 12448634 (Version 2)
Quarter: 2016Q2

REPORT INFORMATION
  Report Type: Spontaneous
  Country: US (occurrence: US)
  Receive Date: 20160608
  Receipt Date: 20160627
  Transmission Date: 20160815
  Serious: Yes (Hospitalization, Other)
  Sender: FDA-Public Use
  Company Number: US-TEVA-665354USA

PATIENT
  Age: 52 Year
  Sex: Male

DRUGS (1)
  1. ISONIAZID. [Suspect]
     Active Substance: ISONIAZID
     Indication: LATENT TUBERCULOSIS
     Dosage: 300 MILLIGRAM DAILY;
     Route: 065

REACTIONS (4)
  - Hyperkalaemia [Unknown]
  - Seizure [Unknown]
  - Subdural haematoma [Unknown]
  - Dizziness [Unknown]
